FAERS Safety Report 11339859 (Version 1)
Quarter: 2015Q3

REPORT INFORMATION
  Report Type: Spontaneous
  Country: US (occurrence: US)
  Receive Date: 20150805
  Receipt Date: 20150805
  Transmission Date: 20151125
  Serious: No
  Sender: FDA-Public Use
  Company Number: US-009507513-1507USA010636

PATIENT
  Sex: Female
  Weight: 73.47 kg

DRUGS (1)
  1. NEXPLANON [Suspect]
     Active Substance: ETONOGESTREL
     Dosage: UNK
     Route: 059

REACTIONS (7)
  - Migraine [Unknown]
  - Anger [Unknown]
  - Headache [Unknown]
  - Mood swings [Unknown]
  - Weight increased [Unknown]
  - Feeling abnormal [Unknown]
  - Asthenia [Unknown]
